FAERS Safety Report 7001842-9 (Version None)
Quarter: 2010Q3

REPORT INFORMATION
  Report Type: 
  Country: None (occurrence: None)
  Receive Date: 20100920
  Receipt Date: 20100416
  Transmission Date: 20110219
  Serious: Yes (Hospitalization)
  Sender: FDA-Public Use
  Company Number: US-ASTRAZENECA-2010SE12587

PATIENT
  Age: 17726 Day
  Sex: Female
  Weight: 87.5 kg

DRUGS (11)
  1. SEROQUEL [Suspect]
     Indication: DEPRESSION
     Dosage: 400 MG AND 50 MG AM
     Route: 048
     Dates: start: 20050101
  2. SEROQUEL [Suspect]
     Indication: ANXIETY
     Dosage: 400 MG AND 50 MG AM
     Route: 048
     Dates: start: 20050101
  3. SEROQUEL [Suspect]
     Dosage: 400-800 DAILY
     Route: 048
     Dates: start: 20050101
  4. SEROQUEL [Suspect]
     Dosage: 400-800 DAILY
     Route: 048
     Dates: start: 20050101
  5. TOPAMAX [Concomitant]
  6. ZOCOR [Concomitant]
  7. PAXIL [Concomitant]
  8. ZOLOFT [Concomitant]
  9. TEMAZEPAM [Concomitant]
  10. TRAZODONE HCL [Concomitant]
  11. ROZEREM [Concomitant]
     Indication: INSOMNIA

REACTIONS (1)
  - CATARACT [None]
